FAERS Safety Report 22100232 (Version 1)
Quarter: 2023Q1

REPORT INFORMATION
  Report Type: Spontaneous
  Country: FR (occurrence: FR)
  Receive Date: 20230315
  Receipt Date: 20230315
  Transmission Date: 20230418
  Serious: Yes (Other)
  Sender: FDA-Public Use
  Company Number: FR-SEATTLE GENETICS-2023SGN02340

PATIENT
  Age: 72 Year
  Sex: Female
  Weight: 59 kg

DRUGS (5)
  1. TUKYSA [Suspect]
     Active Substance: TUCATINIB
     Indication: HER2 positive breast cancer
     Dosage: 300 MG, MORNING AND EVENING
     Route: 065
     Dates: start: 20221026, end: 20221207
  2. CAPECITABINE [Suspect]
     Active Substance: CAPECITABINE
     Indication: HER2 positive breast cancer
     Dosage: 1500 MG, MORNING AND EVENING
     Route: 065
     Dates: start: 20221026
  3. CAPECITABINE [Suspect]
     Active Substance: CAPECITABINE
     Dosage: 1000 MG, MORNING AND EVENING D1 TO D14
     Route: 065
     Dates: start: 20221207
  4. TRASTUZUMAB [Suspect]
     Active Substance: TRASTUZUMAB
     Indication: HER2 positive breast cancer
     Dosage: 160 MG, QD
     Route: 065
     Dates: start: 20221026
  5. TRASTUZUMAB [Suspect]
     Active Substance: TRASTUZUMAB
     Dosage: 360 MG, QD
     Route: 065
     Dates: start: 20230105

REACTIONS (11)
  - Aortic valve incompetence [Unknown]
  - Carcinoembryonic antigen increased [Unknown]
  - Hyperbilirubinaemia [Unknown]
  - Lymphopenia [Unknown]
  - Cell death [Unknown]
  - Blood lactate dehydrogenase abnormal [Unknown]
  - Gamma-glutamyltransferase abnormal [Unknown]
  - Dyspepsia [Recovered/Resolved]
  - Fatigue [Unknown]
  - Palmar-plantar erythrodysaesthesia syndrome [Recovered/Resolved]
  - Diarrhoea [Unknown]

NARRATIVE: CASE EVENT DATE: 20221116
